FAERS Safety Report 4457248-X (Version None)
Quarter: 2004Q3

REPORT INFORMATION
  Report Type: 
  Country: None (occurrence: None)
  Receive Date: 20040914
  Receipt Date: 20040830
  Transmission Date: 20050211
  Serious: Yes (Hospitalization)
  Sender: FDA-Public Use
  Company Number: HQWYE760101SEP04

PATIENT
  Sex: Female

DRUGS (2)
  1. NEUMEGA [Suspect]
  2. INTERFERON (INTERFERON,) [Suspect]

REACTIONS (1)
  - PULMONARY EMBOLISM [None]
